FAERS Safety Report 4279138-8 (Version None)
Quarter: 2004Q1

REPORT INFORMATION
  Report Type: 
  Country: None (occurrence: None)
  Receive Date: 20040122
  Receipt Date: 20040109
  Transmission Date: 20041129
  Serious: Yes (Life-Threatening)
  Sender: FDA-Public Use
  Company Number: 2004002149

PATIENT
  Age: 33 Year
  Sex: Male
  Weight: 80 kg

DRUGS (1)
  1. VIAGRA [Suspect]
     Indication: ERECTILE DYSFUNCTION
     Dosage: 50 MG (ONCE), ORAL
     Route: 048
     Dates: start: 20031220, end: 20031220

REACTIONS (3)
  - LOSS OF CONSCIOUSNESS [None]
  - SYNCOPE [None]
  - VISION BLURRED [None]
